FAERS Safety Report 7726025-6 (Version None)
Quarter: 2011Q3

REPORT INFORMATION
  Report Type: 
  Country: None (occurrence: None)
  Receive Date: 20110902
  Receipt Date: 20110824
  Transmission Date: 20111222
  Serious: Yes (Other)
  Sender: FDA-Public Use
  Company Number: JP-ROCHE-799515

PATIENT
  Age: 43 Year
  Sex: Female

DRUGS (4)
  1. HERCEPTIN [Suspect]
     Indication: BREAST CANCER METASTATIC
     Route: 041
  2. TYKERB [Concomitant]
     Route: 048
  3. XELODA [Suspect]
     Indication: BREAST CANCER METASTATIC
     Route: 048
  4. VINORELBINE TARTRATE [Concomitant]
     Indication: BREAST CANCER RECURRENT

REACTIONS (1)
  - ACUTE MYELOID LEUKAEMIA [None]
